FAERS Safety Report 6472978-6 (Version None)
Quarter: 2009Q4

REPORT INFORMATION
  Report Type: 
  Country: None (occurrence: None)
  Receive Date: 20091204
  Receipt Date: 20091123
  Transmission Date: 20100525
  Serious: Yes (Hospitalization)
  Sender: FDA-Public Use
  Company Number: US-BIOGENIDEC-2009BI022151

PATIENT
  Age: 45 Year
  Sex: Female

DRUGS (1)
  1. TYSABRI [Suspect]
     Indication: MULTIPLE SCLEROSIS
     Route: 042
     Dates: start: 20090216, end: 20091102

REACTIONS (4)
  - ASTHENIA [None]
  - CONSTIPATION [None]
  - PERONEAL NERVE PALSY [None]
  - SALPINGO-OOPHORECTOMY BILATERAL [None]
